FAERS Safety Report 9519701 (Version 1)
Quarter: 2013Q3

REPORT INFORMATION
  Report Type: Spontaneous
  Country: US (occurrence: US)
  Receive Date: 20130912
  Receipt Date: 20130912
  Transmission Date: 20140515
  Serious: Yes (Other)
  Sender: FDA-Public Use
  Company Number: US-TEVA-431192USA

PATIENT
  Sex: Female

DRUGS (2)
  1. RANITIDINE [Suspect]
  2. LEVOTHYROXINE SODIUM [Concomitant]

REACTIONS (1)
  - Coeliac disease [Unknown]
